FAERS Safety Report 17982194 (Version 1)
Quarter: 2020Q3

REPORT INFORMATION
  Report Type: Spontaneous
  Country: US (occurrence: US)
  Receive Date: 20200703
  Receipt Date: 20200703
  Transmission Date: 20201103
  Serious: Yes (Death)
  Sender: FDA-Public Use
  Company Number: None

PATIENT
  Age: 46 Year
  Sex: Male
  Weight: 90.9 kg

DRUGS (8)
  1. REMDESIVIR. [Suspect]
     Active Substance: REMDESIVIR
     Indication: COVID-19
     Route: 040
     Dates: start: 20200701, end: 20200702
  2. ENOXAPARIN 90MG [Concomitant]
     Dates: start: 20200701, end: 20200702
  3. LEVOFLOXACIN 750MG [Concomitant]
     Active Substance: LEVOFLOXACIN
     Dates: start: 20200702, end: 20200702
  4. LORAZEPAM 0.5MG [Concomitant]
     Active Substance: LORAZEPAM
     Dates: start: 20200702, end: 20200702
  5. INSULIN LISPRO [Concomitant]
     Active Substance: INSULIN LISPRO
     Dates: start: 20200701, end: 20200702
  6. NOREPINEPHRINE DRIP [Concomitant]
     Dates: start: 20200702, end: 20200703
  7. ACETAMINOPHEN 650MG [Concomitant]
     Dates: start: 20200702, end: 20200703
  8. DOPAMINE DRIP [Concomitant]
     Dates: start: 20200702, end: 20200702

REACTIONS (1)
  - Acute kidney injury [None]

NARRATIVE: CASE EVENT DATE: 20200703
